FAERS Safety Report 21446849 (Version 1)
Quarter: 2022Q4

REPORT INFORMATION
  Report Type: Spontaneous
  Country: US (occurrence: None)
  Receive Date: 20221011
  Receipt Date: 20221011
  Transmission Date: 20230112
  Serious: Yes (unspecified)
  Sender: FDA-Public Use
  Company Number: None

PATIENT
  Age: 70 Year
  Sex: Male

DRUGS (2)
  1. PREDNISONE ACETATE [Suspect]
     Active Substance: PREDNISONE ACETATE
     Indication: Keratitis
     Dates: start: 20210901, end: 20220912
  2. PREDNISONE ACETATE [Suspect]
     Active Substance: PREDNISONE ACETATE
     Indication: Iridocyclitis

REACTIONS (3)
  - Vision blurred [None]
  - Instillation site irritation [None]
  - Instillation site erythema [None]

NARRATIVE: CASE EVENT DATE: 20220901
